FAERS Safety Report 8060622-6 (Version None)
Quarter: 2012Q1

REPORT INFORMATION
  Report Type: 
  Country: None (occurrence: None)
  Receive Date: 20120120
  Receipt Date: 20120116
  Transmission Date: 20120608
  Serious: Yes (Other)
  Sender: FDA-Public Use
  Company Number: GB-GILEAD-2012-0049269

PATIENT
  Age: 39 Year
  Sex: Male

DRUGS (2)
  1. TENOFOVIR DISOPROXIL FUMARATE [Suspect]
     Indication: HEPATITIS B
     Dosage: 245 MG, QD
     Route: 002
     Dates: start: 20110127, end: 20111104
  2. EMTRICITABINE [Concomitant]
     Indication: HEPATITIS B

REACTIONS (6)
  - BLOOD PHOSPHORUS ABNORMAL [None]
  - ASTHENIA [None]
  - RENAL TUBULAR DISORDER [None]
  - RENAL FAILURE [None]
  - BLOOD CREATININE INCREASED [None]
  - GLOMERULAR FILTRATION RATE DECREASED [None]
